FAERS Safety Report 10410967 (Version 1)
Quarter: 2014Q3

REPORT INFORMATION
  Report Type: Spontaneous
  Country: BR (occurrence: BR)
  Receive Date: 20140826
  Receipt Date: 20140826
  Transmission Date: 20150326
  Serious: Yes (Other)
  Sender: FDA-Public Use
  Company Number: BR-PFIZER INC-2014236627

PATIENT
  Age: 64 Year
  Sex: Female
  Weight: 87 kg

DRUGS (2)
  1. CELEBRA [Suspect]
     Active Substance: CELECOXIB
     Indication: BACK PAIN
  2. CELEBRA [Suspect]
     Active Substance: CELECOXIB
     Indication: PAIN
     Dosage: 200 MG, 1 CAPSULE EVERY 12 HOURS
     Route: 048
     Dates: start: 201404

REACTIONS (2)
  - Fall [Unknown]
  - Foot fracture [Unknown]
